FAERS Safety Report 14346478 (Version 1)
Quarter: 2018Q1

REPORT INFORMATION
  Report Type: Spontaneous
  Country: US (occurrence: US)
  Receive Date: 20180103
  Receipt Date: 20180103
  Transmission Date: 20180509
  Serious: Yes (Death)
  Sender: FDA-Public Use
  Company Number: US-PFIZER INC-2018001297

PATIENT
  Age: 98 Year
  Sex: Female

DRUGS (1)
  1. KERYDIN [Suspect]
     Active Substance: TAVABOROLE
     Dosage: 10 ML, 1X/DAY, 1 APPLICATION TOPICALLY TO TOENAILS DAILY
     Route: 061

REACTIONS (1)
  - Death [Fatal]
